FAERS Safety Report 8516444 (Version 2)
Quarter: 2012Q4

REPORT INFORMATION
  Report Type: 
  Country: US (occurrence: US)
  Receive Date: 20120417
  Receipt Date: 20120904
  Transmission Date: 20130627
  Serious: Yes (Other)
  Sender: FDA-Public Use
  Company Number: US-BRISTOL-MYERS SQUIBB COMPANY-16385858

PATIENT
  Age: 87 Year
  Sex: Female
  Weight: 46 kg

DRUGS (5)
  1. HYDREA [Suspect]
     Indication: POLYCYTHAEMIA
     Dosage: 1990-Unknw, 29Nov11-20Dec11
     Route: 048
     Dates: start: 1990, end: 20111220
  2. ACETYLSALICYLIC ACID [Concomitant]
     Route: 048
  3. LEVOTHYROXINE [Concomitant]
     Dosage: Tab
     Route: 048
     Dates: start: 20111230, end: 20120128
  4. ASPIRIN [Concomitant]
     Dosage: Enteric coated tab
     Route: 048
     Dates: start: 20110809, end: 20110809
  5. METOPROLOL SUCCINATE [Concomitant]
     Dosage: Extended release tab
     Route: 048

REACTIONS (4)
  - Skin ulcer [Recovered/Resolved]
  - Pancytopenia [Recovered/Resolved]
  - Syncope [Unknown]
  - Heart rate irregular [Unknown]
